FAERS Safety Report 17416220 (Version 2)
Quarter: 2020Q1

REPORT INFORMATION
  Report Type: Spontaneous
  Country: AU (occurrence: AU)
  Receive Date: 20200213
  Receipt Date: 20200219
  Transmission Date: 20200409
  Serious: Yes (Hospitalization, Other)
  Sender: FDA-Public Use
  Company Number: AU-JNJFOC-20200205061

PATIENT
  Age: 52 Year
  Sex: Female

DRUGS (4)
  1. INVEGA SUSTENNA [Suspect]
     Active Substance: PALIPERIDONE PALMITATE
     Route: 030
  2. INVEGA SUSTENNA [Suspect]
     Active Substance: PALIPERIDONE PALMITATE
     Dosage: SECOND INITIATION DOSE
     Route: 030
     Dates: start: 20200103
  3. INVEGA SUSTENNA [Suspect]
     Active Substance: PALIPERIDONE PALMITATE
     Dosage: FIRST MONTHLY MAINTENANCE DOSE
     Route: 030
     Dates: start: 20200130
  4. INVEGA SUSTENNA [Suspect]
     Active Substance: PALIPERIDONE PALMITATE
     Indication: SCHIZOPHRENIA
     Dosage: INITIATION DOSE
     Route: 030
     Dates: start: 20191227

REACTIONS (11)
  - Dyspnoea [Unknown]
  - Fatigue [Unknown]
  - Off label use [Unknown]
  - Poisoning [Unknown]
  - Hypertension [Unknown]
  - Inappropriate schedule of product administration [Unknown]
  - Dizziness [Unknown]
  - Feeling hot [Unknown]
  - Vision blurred [Unknown]
  - Blood prolactin increased [Unknown]
  - Skin laceration [Unknown]

NARRATIVE: CASE EVENT DATE: 20200130
